FAERS Safety Report 14383997 (Version 1)
Quarter: 2018Q1

REPORT INFORMATION
  Report Type: Spontaneous
  Country: US (occurrence: US)
  Receive Date: 20180115
  Receipt Date: 20180115
  Transmission Date: 20180509
  Serious: No
  Sender: FDA-Public Use
  Company Number: US-PFIZER INC-2018014230

PATIENT
  Age: 28 Year
  Sex: Female

DRUGS (1)
  1. PROVERA [Suspect]
     Active Substance: MEDROXYPROGESTERONE ACETATE
     Dosage: UNK

REACTIONS (3)
  - Breast discomfort [Not Recovered/Not Resolved]
  - Drug hypersensitivity [Unknown]
  - Withdrawal bleed [Unknown]

NARRATIVE: CASE EVENT DATE: 20151117
